FAERS Safety Report 7680418-4 (Version None)
Quarter: 2011Q3

REPORT INFORMATION
  Report Type: 
  Country: None (occurrence: None)
  Receive Date: 20110812
  Receipt Date: 20110728
  Transmission Date: 20111222
  Serious: Yes (Hospitalization, Other)
  Sender: FDA-Public Use
  Company Number: FR-PFIZER INC-2010172927

PATIENT
  Age: 58 Year
  Sex: Female

DRUGS (7)
  1. ATARAX [Suspect]
     Dosage: UNK
     Dates: start: 20101008, end: 20101009
  2. COUMADIN [Suspect]
     Indication: EMBOLISM
     Dosage: 5 MG, 1X/DAY
     Route: 048
     Dates: start: 20101007, end: 20101011
  3. APIXABAN [Suspect]
     Indication: EMBOLISM
     Dosage: 5 MG, 1X/DAY
     Route: 048
     Dates: start: 20101007, end: 20101011
  4. ENOXAPARIN [Suspect]
     Indication: EMBOLISM
     Dosage: 1 DF, 1X/DAY
     Route: 058
     Dates: start: 20101007, end: 20101011
  5. AUGMENTIN '125' [Suspect]
     Dosage: UNK
     Dates: start: 20101007, end: 20101011
  6. ACETAMINOPHEN [Suspect]
     Dosage: UNK
     Dates: start: 20101007, end: 20101011
  7. PLACEBO [Suspect]
     Indication: EMBOLISM
     Dosage: UNK
     Dates: start: 20101007, end: 20101011

REACTIONS (4)
  - CHOLESTASIS [None]
  - HEPATIC ENZYME INCREASED [None]
  - LUNG NEOPLASM MALIGNANT [None]
  - CYTOLYTIC HEPATITIS [None]
